FAERS Safety Report 15133764 (Version 4)
Quarter: 2018Q4

REPORT INFORMATION
  Report Type: Spontaneous
  Country: KR (occurrence: KR)
  Receive Date: 20180712
  Receipt Date: 20181210
  Transmission Date: 20190204
  Serious: Yes (Other)
  Sender: FDA-Public Use
  Company Number: KR-IPSEN BIOPHARMACEUTICALS, INC.-2018-09942

PATIENT
  Sex: Male

DRUGS (1)
  1. SOMATULINE AUTOGEL 90MG [Suspect]
     Active Substance: LANREOTIDE ACETATE
     Indication: ACROMEGALY
     Dosage: 90 MG
     Route: 065
     Dates: end: 2018

REACTIONS (6)
  - Decreased appetite [Recovering/Resolving]
  - Amylase increased [Recovering/Resolving]
  - Dysphagia [Recovering/Resolving]
  - Abdominal pain [Recovering/Resolving]
  - Pancreatitis [Recovering/Resolving]
  - Haematuria [Recovering/Resolving]

NARRATIVE: CASE EVENT DATE: 2018
